FAERS Safety Report 7730101-1 (Version None)
Quarter: 2011Q3

REPORT INFORMATION
  Report Type: 
  Country: None (occurrence: None)
  Receive Date: 20110901
  Receipt Date: 20110901
  Transmission Date: 20111222
  Serious: No
  Sender: FDA-Public Use
  Company Number: None

PATIENT
  Age: 68 Year
  Sex: Female
  Weight: 121.1104 kg

DRUGS (1)
  1. RAMIPRIL [Suspect]
     Indication: HYPERTENSION
     Dosage: 1 CAPSULE DAILY
     Dates: start: 20110331

REACTIONS (4)
  - THERMAL BURN [None]
  - PRURITUS [None]
  - URTICARIA [None]
  - FORMICATION [None]
